FAERS Safety Report 4859960-7 (Version None)
Quarter: 2005Q4

REPORT INFORMATION
  Report Type: 
  Country: None (occurrence: None)
  Receive Date: 20051215
  Receipt Date: 20051202
  Transmission Date: 20060501
  Serious: Yes (Death)
  Sender: FDA-Public Use
  Company Number: 2005152036

PATIENT
  Age: 59 Year
  Sex: Female

DRUGS (1)
  1. VFEND [Suspect]
     Indication: BRONCHOPULMONARY ASPERGILLOSIS
     Dosage: 360 MG (180 MG, BID), INTRAVENOUS
     Route: 042
     Dates: start: 20051027, end: 20051103

REACTIONS (8)
  - ACUTE MYELOID LEUKAEMIA [None]
  - ANURIA [None]
  - CONDITION AGGRAVATED [None]
  - DRUG INEFFECTIVE [None]
  - DRUG RESISTANCE [None]
  - HAEMORRHAGIC CEREBRAL INFARCTION [None]
  - PNEUMONIA ASPERGILLUS [None]
  - RASH [None]
